FAERS Safety Report 16873661 (Version 1)
Quarter: 2019Q4

REPORT INFORMATION
  Report Type: Spontaneous
  Country: FR (occurrence: FR)
  Receive Date: 20191001
  Receipt Date: 20191001
  Transmission Date: 20200122
  Serious: Yes (Hospitalization)
  Sender: FDA-Public Use
  Company Number: FR-MYLANLABS-2019M1091245

PATIENT
  Age: 79 Year
  Sex: Male
  Weight: 57 kg

DRUGS (1)
  1. RIVASTIGMINE. [Suspect]
     Active Substance: RIVASTIGMINE
     Indication: DEMENTIA WITH LEWY BODIES
     Dosage: 1 DOSAGE FORM
     Route: 003
     Dates: end: 201809

REACTIONS (4)
  - Urinary retention [Recovering/Resolving]
  - Confusional state [Recovering/Resolving]
  - Myoclonus [Recovering/Resolving]
  - Constipation [Recovering/Resolving]

NARRATIVE: CASE EVENT DATE: 201809
